FAERS Safety Report 13526277 (Version 1)
Quarter: 2017Q2

REPORT INFORMATION
  Report Type: Spontaneous
  Country: AU (occurrence: AU)
  Receive Date: 20170509
  Receipt Date: 20170509
  Transmission Date: 20170830
  Serious: Yes (Hospitalization)
  Sender: FDA-Public Use
  Company Number: AU-ROCHE-1925832

PATIENT
  Age: 78 Year
  Sex: Male

DRUGS (8)
  1. GAZYVA [Suspect]
     Active Substance: OBINUTUZUMAB
     Indication: CHRONIC LYMPHOCYTIC LEUKAEMIA
     Dosage: C1D1 100MG OBINUTUZUMAB IN 100ML 0.9% NS
     Route: 065
     Dates: start: 201702
  2. CLOPIDOGREL [Concomitant]
     Active Substance: CLOPIDOGREL BISULFATE
  3. ZANIDIP [Concomitant]
     Active Substance: LERCANIDIPINE HYDROCHLORIDE
  4. ZYLOPRIM [Concomitant]
     Active Substance: ALLOPURINOL
  5. SOMAC [Concomitant]
     Active Substance: PANTOPRAZOLE SODIUM
  6. GAZYVA [Suspect]
     Active Substance: OBINUTUZUMAB
     Dosage: C1D2 900MG
     Route: 065
  7. CHLORAMBUCIL [Suspect]
     Active Substance: CHLORAMBUCIL
     Indication: CHRONIC LYMPHOCYTIC LEUKAEMIA
     Route: 065
  8. ATORVASTATIN [Concomitant]
     Active Substance: ATORVASTATIN

REACTIONS (11)
  - Neutrophil count increased [Unknown]
  - Dyspnoea [Unknown]
  - Platelet count decreased [Unknown]
  - Lymphocyte count decreased [Unknown]
  - Haemoglobin increased [Unknown]
  - Pain [Recovered/Resolved]
  - Flushing [Unknown]
  - Chills [Recovered/Resolved]
  - Haemoglobin decreased [Unknown]
  - Neutrophil count decreased [Unknown]
  - White blood cell count decreased [Unknown]
